FAERS Safety Report 8801734 (Version 2)
Quarter: 2012Q4

REPORT INFORMATION
  Report Type: 
  Country: US (occurrence: US)
  Receive Date: 20120921
  Receipt Date: 20121016
  Transmission Date: 20130627
  Serious: No
  Sender: FDA-Public Use
  Company Number: US-PFIZER INC-2012231034

PATIENT
  Age: 32 Year
  Sex: Female
  Weight: 48.98 kg

DRUGS (2)
  1. AZITHROMYCIN [Suspect]
     Indication: SINUSITIS
     Dosage: 250 mg, 1x/day for 14 days
     Route: 048
     Dates: start: 20120913
  2. AZITHROMYCIN [Suspect]
     Indication: SINUSITIS

REACTIONS (5)
  - Eye disorder [Not Recovered/Not Resolved]
  - Sinusitis [Not Recovered/Not Resolved]
  - Pharyngeal oedema [Not Recovered/Not Resolved]
  - Headache [Not Recovered/Not Resolved]
  - Drug ineffective [Unknown]
